FAERS Safety Report 5530112-0 (Version None)
Quarter: 2007Q4

REPORT INFORMATION
  Report Type: 
  Country: None (occurrence: None)
  Receive Date: 20071130
  Receipt Date: 20071127
  Transmission Date: 20080405
  Serious: Yes (Life-Threatening)
  Sender: FDA-Public Use
  Company Number: PHBS2007JP11722

PATIENT
  Age: 77 Year
  Sex: Female

DRUGS (10)
  1. COMTAN [Suspect]
     Indication: PARKINSON'S DISEASE
     Dosage: 100 MG, BID
     Route: 048
     Dates: start: 20070614, end: 20070627
  2. COMTAN [Suspect]
     Dosage: 100 MG, QID
     Route: 048
     Dates: start: 20070628, end: 20070629
  3. MENESIT [Concomitant]
     Indication: PARKINSON'S DISEASE
     Dosage: 400 MG/D
     Route: 048
     Dates: start: 20020101, end: 20070629
  4. FLUVOXAMINE MALEATE [Concomitant]
     Indication: DEPRESSION
     Dosage: 100 MG/DAY
     Route: 048
     Dates: start: 20020101, end: 20070711
  5. RIVOTRIL [Concomitant]
     Indication: PARKINSON'S DISEASE
     Dosage: 1.5 MG/DAY
     Route: 048
     Dates: start: 20040629, end: 20070711
  6. PERMAX [Concomitant]
     Indication: PARKINSON'S DISEASE
     Dosage: 750 UG/DAY
     Route: 048
     Dates: start: 20041111, end: 20070711
  7. ARICEPT [Concomitant]
     Indication: PARKINSON'S DISEASE
     Dosage: 5 MG/DAY
     Route: 048
     Dates: start: 20061215, end: 20070711
  8. SIFROL [Concomitant]
     Indication: PARKINSON'S DISEASE
     Dosage: 3 MG/DAY
     Route: 048
     Dates: start: 20050223, end: 20070711
  9. MAGLAX [Concomitant]
     Indication: CONSTIPATION
     Dosage: 2000 MG/DAY
     Route: 048
     Dates: start: 20070510, end: 20070711
  10. DIOVAN [Concomitant]
     Indication: HYPERTENSION
     Dosage: 40 MG/DAY
     Route: 048
     Dates: start: 20070316

REACTIONS (12)
  - C-REACTIVE PROTEIN INCREASED [None]
  - CHEST X-RAY ABNORMAL [None]
  - DYSPNOEA [None]
  - EOSINOPHILIA [None]
  - INTERSTITIAL LUNG DISEASE [None]
  - OXYGEN SATURATION DECREASED [None]
  - PNEUMONIA [None]
  - PYREXIA [None]
  - RESPIRATORY DISORDER [None]
  - RESPIRATORY FAILURE [None]
  - WHEEZING [None]
  - WHITE BLOOD CELL COUNT INCREASED [None]
